FAERS Safety Report 13611921 (Version 1)
Quarter: 2017Q2

REPORT INFORMATION
  Report Type: Spontaneous
  Country: US (occurrence: US)
  Receive Date: 20170605
  Receipt Date: 20170605
  Transmission Date: 20170830
  Serious: Yes (Other)
  Sender: FDA-Public Use
  Company Number: None

PATIENT
  Age: 47 Year
  Sex: Female
  Weight: 47.25 kg

DRUGS (3)
  1. ESTRADIOL. [Suspect]
     Active Substance: ESTRADIOL
  2. MULTIVITAMIN [Concomitant]
     Active Substance: VITAMINS
  3. ESTRIOL [Suspect]
     Active Substance: ESTRIOL

REACTIONS (4)
  - Intentional product use issue [None]
  - Mobility decreased [None]
  - Headache [None]
  - Chest pain [None]

NARRATIVE: CASE EVENT DATE: 20170429
